FAERS Safety Report 9731256 (Version 1)
Quarter: 2013Q4

REPORT INFORMATION
  Report Type: Spontaneous
  Country: US (occurrence: US)
  Receive Date: 20131205
  Receipt Date: 20131205
  Transmission Date: 20140711
  Serious: Yes (Death, Other)
  Sender: FDA-Public Use
  Company Number: US-BEH-2013039147

PATIENT
  Age: 66 Year
  Sex: Male

DRUGS (1)
  1. ZEMAIRA [Suspect]

REACTIONS (1)
  - Respiratory failure [Fatal]
